FAERS Safety Report 12280247 (Version 3)
Quarter: 2016Q4

REPORT INFORMATION
  Report Type: Spontaneous
  Country: TW (occurrence: TW)
  Receive Date: 20160419
  Receipt Date: 20161015
  Transmission Date: 20170207
  Serious: Yes (Other)
  Sender: FDA-Public Use
  Company Number: TW-AMGEN-TWNSP2016048903

PATIENT
  Age: 63 Year
  Sex: Female

DRUGS (19)
  1. ARCOXIA [Concomitant]
     Active Substance: ETORICOXIB
     Dosage: 1 DF, 1X/DAY
  2. NORVASC [Concomitant]
     Active Substance: AMLODIPINE BESYLATE
     Dosage: 1 DF,ONCE DAILY
  3. SILYMARIN [Concomitant]
     Active Substance: MILK THISTLE
     Dosage: 1 DF, TID
  4. SILYMARIN [Concomitant]
     Active Substance: MILK THISTLE
  5. SULFASALAZINE. [Concomitant]
     Active Substance: SULFASALAZINE
     Dosage: 2 DF, TWICE DAILY
  6. NORVASC [Concomitant]
     Active Substance: AMLODIPINE BESYLATE
  7. PREDNISOLONE. [Concomitant]
     Active Substance: PREDNISOLONE
     Dosage: 1 DF, 1X/DAY
  8. SULFASALAZINE. [Concomitant]
     Active Substance: SULFASALAZINE
     Dosage: 2 DF, 2X/DAY
  9. ARCOXIA [Concomitant]
     Active Substance: ETORICOXIB
     Dosage: UNK, QD
  10. CHLORZOXAZONE. [Concomitant]
     Active Substance: CHLORZOXAZONE
     Dosage: 1 DF, 1X/DAY (HS OR AT BEDTIME)
  11. SILYMARIN [Concomitant]
     Active Substance: MILK THISTLE
     Dosage: 1 DF, 3X/DAY
  12. NORVASC [Concomitant]
     Active Substance: AMLODIPINE BESYLATE
     Dosage: 1 DF, 1X/DAY
  13. PREDNISOLONE. [Concomitant]
     Active Substance: PREDNISOLONE
     Dosage: 5 MG, ONCE DAILY
  14. PREDNISOLONE. [Concomitant]
     Active Substance: PREDNISOLONE
     Dosage: 1 DF, 1X/DAY
  15. ARCOXIA [Concomitant]
     Active Substance: ETORICOXIB
     Dosage: 60 MG, 1X/DAY
  16. ENBREL [Suspect]
     Active Substance: ETANERCEPT
     Indication: RHEUMATOID ARTHRITIS
     Dosage: 25 MG, TWICE PER WEEK
     Route: 058
     Dates: start: 20151012
  17. SULFASALAZINE. [Concomitant]
     Active Substance: SULFASALAZINE
     Dosage: 2 DF, 2X/DAY
  18. CHLORZOXAZONE. [Concomitant]
     Active Substance: CHLORZOXAZONE
     Dosage: 1 DF, HS
  19. CHLORZOXAZONE. [Concomitant]
     Active Substance: CHLORZOXAZONE
     Dosage: 1 DF, 1X/DAY (HS OR AT BEDTIME)

REACTIONS (1)
  - Hepatic fibrosis [Not Recovered/Not Resolved]
